FAERS Safety Report 14283121 (Version 4)
Quarter: 2018Q4

REPORT INFORMATION
  Report Type: Report from Study
  Country: US (occurrence: US)
  Receive Date: 20171213
  Receipt Date: 20181129
  Transmission Date: 20190204
  Serious: Yes (Hospitalization)
  Sender: FDA-Public Use
  Company Number: US-ACTELION-A-US2016-130798

PATIENT
  Age: 36 Year
  Sex: Female
  Weight: 52.15 kg

DRUGS (7)
  1. VELETRI [Suspect]
     Active Substance: EPOPROSTENOL
     Dosage: 12 NG/KG, PER MIN
     Route: 042
  2. ADCIRCA [Concomitant]
     Active Substance: TADALAFIL
  3. VELETRI [Suspect]
     Active Substance: EPOPROSTENOL
     Dosage: 74 NG/KG, PER MIN
     Route: 042
  4. OPSUMIT [Concomitant]
     Active Substance: MACITENTAN
  5. VELETRI [Suspect]
     Active Substance: EPOPROSTENOL
     Indication: PULMONARY HYPERTENSION
     Dosage: 47 NG/KG, PER MIN
     Route: 042
  6. VELETRI [Suspect]
     Active Substance: EPOPROSTENOL
     Dosage: 72 NG/KG, PER MIN
     Route: 042
     Dates: start: 20151208
  7. PREDNISONE. [Suspect]
     Active Substance: PREDNISONE
     Indication: PRODUCT USED FOR UNKNOWN INDICATION
     Route: 065

REACTIONS (22)
  - Pyrexia [Unknown]
  - Weight decreased [Unknown]
  - Gastroenteritis viral [Unknown]
  - Pain [Unknown]
  - Infection [Unknown]
  - Application site irritation [Unknown]
  - Weight fluctuation [Unknown]
  - Cardiac disorder [Unknown]
  - Dyspnoea [Unknown]
  - Cough [Unknown]
  - Colitis [Unknown]
  - Platelet count decreased [Unknown]
  - Hypersensitivity [Unknown]
  - Dehydration [Unknown]
  - Influenza [Unknown]
  - Ligament sprain [Unknown]
  - Malaise [Unknown]
  - Eye disorder [Unknown]
  - Nasopharyngitis [Unknown]
  - Thyroid function test abnormal [Unknown]
  - Gastrointestinal bacterial overgrowth [Unknown]
  - Rhinorrhoea [Unknown]

NARRATIVE: CASE EVENT DATE: 20171008
